FAERS Safety Report 4354971-2 (Version None)
Quarter: 2004Q2

REPORT INFORMATION
  Report Type: 
  Country: None (occurrence: None)
  Receive Date: 20040504
  Receipt Date: 20040419
  Transmission Date: 20050107
  Serious: Yes (Hospitalization)
  Sender: FDA-Public Use
  Company Number: 701893

PATIENT
  Age: 42 Year
  Sex: Male

DRUGS (14)
  1. AMEVIVE [Suspect]
     Indication: PSORIASIS
     Dosage: 15 MG QW IM
     Route: 030
     Dates: start: 20040323
  2. .. [Suspect]
  3. .. [Concomitant]
  4. .. [Concomitant]
  5. .. [Concomitant]
  6. .. [Concomitant]
  7. .. [Concomitant]
  8. .. [Concomitant]
  9. .. [Concomitant]
  10. .. [Concomitant]
  11. .. [Concomitant]
  12. .. [Concomitant]
  13. .. [Concomitant]
  14. .. [Concomitant]

REACTIONS (6)
  - ACUTE RESPIRATORY FAILURE [None]
  - CD4 LYMPHOCYTES DECREASED [None]
  - DIALYSIS [None]
  - PERIPHERAL ISCHAEMIA [None]
  - RENAL FAILURE ACUTE [None]
  - SEPSIS [None]
